FAERS Safety Report 14739338 (Version 1)
Quarter: 2018Q2

REPORT INFORMATION
  Report Type: Report from Study
  Country: None (occurrence: DE)
  Receive Date: 20180410
  Receipt Date: 20180410
  Transmission Date: 20180711
  Serious: Yes (Hospitalization)
  Sender: FDA-Public Use
  Company Number: DE-ABBVIE-18K-062-2316032-00

PATIENT
  Age: 35 Year
  Sex: Female
  Weight: 76 kg

DRUGS (1)
  1. HUMIRA [Suspect]
     Active Substance: ADALIMUMAB
     Indication: PSORIASIS
     Route: 058
     Dates: start: 20131001

REACTIONS (3)
  - Accident at work [Recovered/Resolved]
  - Concussion [Recovered/Resolved]
  - Prosthesis implantation [Recovered/Resolved]

NARRATIVE: CASE EVENT DATE: 2018
